FAERS Safety Report 8633238 (Version 2)
Quarter: 2012Q4

REPORT INFORMATION
  Report Type: 
  Country: US (occurrence: US)
  Receive Date: 20120625
  Receipt Date: 20120927
  Transmission Date: 20130627
  Serious: Yes (Other)
  Sender: FDA-Public Use
  Company Number: US-PFIZER INC-2012147817

PATIENT
  Age: 56 Year
  Sex: Male
  Weight: 86.2 kg

DRUGS (16)
  1. LYRICA [Suspect]
     Indication: NEUROPATHY PERIPHERAL
     Dosage: 100 mg, 3x/day
     Route: 048
  2. GABAPENTIN [Suspect]
     Indication: NEUROPATHY PERIPHERAL
     Dosage: UNK
  3. LANTUS [Concomitant]
     Indication: INSULIN-REQUIRING TYPE 2 DIABETES MELLITUS
     Dosage: 65 units daily at night
     Dates: start: 1993
  4. HUMALOG [Concomitant]
     Indication: INSULIN-REQUIRING TYPE 2 DIABETES MELLITUS
     Dosage: UNK
     Dates: start: 1993
  5. NIFEDIPINE [Concomitant]
     Indication: HYPERTENSION
     Dosage: 90 mg, daily
     Route: 048
  6. ENALAPRIL [Concomitant]
     Indication: HYPERTENSION
     Dosage: 20 mg, 2x/day
     Route: 048
  7. CARVEDILOL [Concomitant]
     Indication: HYPERTENSION
     Dosage: 25 mg, daily
     Route: 048
  8. MOTRIN [Concomitant]
     Indication: NEUROPATHY PERIPHERAL
     Dosage: 150 mg, 2x/day
     Route: 048
  9. ALLOPURINOL [Concomitant]
     Indication: GOUT
     Dosage: 100 mg, daily
     Route: 048
  10. HYDRALAZINE [Concomitant]
     Indication: HYPERTENSION
     Dosage: 25 mg, as needed
  11. LASIX [Concomitant]
     Indication: FLUID RETENTION
     Dosage: 20 mg, daily
     Route: 048
  12. ZOLOFT [Concomitant]
     Indication: DEPRESSION
     Dosage: 50 mg, daily
     Route: 048
  13. TAMSULOSIN HYDROCHLORIDE [Concomitant]
     Indication: PROSTATOMEGALY
     Dosage: 0.4 mg, daily
  14. ALDACTONE [Concomitant]
     Indication: DIURETIC THERAPY
     Dosage: 50 mg, daily
     Route: 048
  15. ALDACTONE [Concomitant]
     Indication: HYPERTENSION
  16. VITAMIN C [Concomitant]
     Dosage: 500 mg, daily
     Route: 048

REACTIONS (7)
  - Staphylococcal infection [Unknown]
  - Oedema peripheral [Unknown]
  - Staphylococcal infection [Unknown]
  - Wound infection [Unknown]
  - Limb injury [Unknown]
  - Burning sensation [Unknown]
  - Drug ineffective [Unknown]
